FAERS Safety Report 14158122 (Version 6)
Quarter: 2020Q1

REPORT INFORMATION
  Report Type: Spontaneous
  Country: US (occurrence: US)
  Receive Date: 20171103
  Receipt Date: 20200106
  Transmission Date: 20200409
  Serious: Yes (Other)
  Sender: FDA-Public Use
  Company Number: US-PFIZER INC-2017472533

PATIENT
  Age: 73 Year
  Sex: Female
  Weight: 81.63 kg

DRUGS (1)
  1. XELJANZ XR [Suspect]
     Active Substance: TOFACITINIB CITRATE
     Indication: RHEUMATOID ARTHRITIS
     Dosage: 11 MG, 1X/DAY
     Route: 048
     Dates: start: 2017

REACTIONS (11)
  - Respiratory tract infection [Recovering/Resolving]
  - Blood potassium decreased [Unknown]
  - Hypersensitivity [Recovering/Resolving]
  - Herpes zoster [Recovering/Resolving]
  - Dyspnoea [Unknown]
  - Cough [Unknown]
  - Blood cholesterol increased [Unknown]
  - Malaise [Unknown]
  - Gingival disorder [Not Recovered/Not Resolved]
  - Weight increased [Unknown]
  - Body height decreased [Unknown]

NARRATIVE: CASE EVENT DATE: 20180516
